FAERS Safety Report 6358600-8 (Version None)
Quarter: 2009Q3

REPORT INFORMATION
  Report Type: 
  Country: None (occurrence: None)
  Receive Date: 20090914
  Receipt Date: 20090901
  Transmission Date: 20100115
  Serious: Yes (Other)
  Sender: FDA-Public Use
  Company Number: SPI200900292

PATIENT
  Age: 82 Year
  Sex: Female

DRUGS (1)
  1. AMITIZA [Suspect]
     Indication: CONSTIPATION
     Dosage: 8 MCG
     Dates: start: 20090801, end: 20090101

REACTIONS (1)
  - CEREBROVASCULAR ACCIDENT [None]
